FAERS Safety Report 11381498 (Version 1)
Quarter: 2015Q3

REPORT INFORMATION
  Report Type: Spontaneous
  Country: BR (occurrence: BR)
  Receive Date: 20150814
  Receipt Date: 20150814
  Transmission Date: 20151125
  Serious: Yes (Other)
  Sender: FDA-Public Use
  Company Number: BR-MYLANLABS-2015M1026691

PATIENT

DRUGS (4)
  1. ESTRADIOL VALERATE. [Suspect]
     Active Substance: ESTRADIOL VALERATE
     Indication: PRODUCT USED FOR UNKNOWN INDICATION
     Route: 030
  2. CYPROTERONE W/ETHINYLESTRADIOL [Suspect]
     Active Substance: CYPROTERONE ACETATE\ETHINYL ESTRADIOL
     Indication: PRODUCT USED FOR UNKNOWN INDICATION
     Dosage: 35MCG/2MG ONCE A DAY
     Route: 048
  3. ESTRADIOL. [Suspect]
     Active Substance: ESTRADIOL
     Indication: PRODUCT USED FOR UNKNOWN INDICATION
     Dosage: TOTAL 8 DOSES
     Route: 030
  4. ESTRADIOL. [Suspect]
     Active Substance: ESTRADIOL
     Dosage: CONTINUED FOR 16 YEARS
     Route: 030

REACTIONS (1)
  - Prolactinoma [Not Recovered/Not Resolved]
